FAERS Safety Report 9839270 (Version 1)
Quarter: 2014Q1

REPORT INFORMATION
  Report Type: Spontaneous
  Country: TR (occurrence: TR)
  Receive Date: 20140123
  Receipt Date: 20140123
  Transmission Date: 20141002
  Serious: Yes (Hospitalization)
  Sender: FDA-Public Use
  Company Number: US-ASTRAZENECA-2014SE04320

PATIENT
  Sex: 0

DRUGS (1)
  1. PALIVIZUMAB [Suspect]
     Indication: ANTIVIRAL PROPHYLAXIS
     Route: 030

REACTIONS (2)
  - Lower respiratory tract infection [Unknown]
  - Pneumonia [Unknown]
